FAERS Safety Report 24162317 (Version 1)
Quarter: 2024Q3

REPORT INFORMATION
  Report Type: Spontaneous
  Country: US (occurrence: US)
  Receive Date: 20240801
  Receipt Date: 20240801
  Transmission Date: 20241017
  Serious: Yes (Other)
  Sender: BLUEPRINT MEDICINES
  Company Number: US-BLUEPRINT MEDICINES CORPORATION-2024BUS004451

PATIENT

DRUGS (1)
  1. GAVRETO [Suspect]
     Active Substance: PRALSETINIB
     Indication: Thyroid cancer
     Dosage: UNKNOWN OF DOSE AND FREQUENCY
     Route: 065

REACTIONS (1)
  - Spinal fusion surgery [Unknown]
